FAERS Safety Report 8859592 (Version 1)
Quarter: 2012Q4

REPORT INFORMATION
  Report Type: 
  Country: FR (occurrence: FR)
  Receive Date: 20121025
  Receipt Date: 20121025
  Transmission Date: 20130627
  Serious: Yes (Hospitalization)
  Sender: FDA-Public Use
  Company Number: FR-EISAI INC-E3810-06015-SPO-FR

PATIENT
  Age: 98 Year
  Sex: Female

DRUGS (7)
  1. PARIET (RABEPRAZOLE) [Suspect]
     Route: 048
     Dates: end: 20120815
  2. LOXEN [Concomitant]
     Route: 065
  3. LORAZEPAM [Concomitant]
     Route: 065
  4. KARDEGIC [Concomitant]
     Route: 065
  5. CALCIDOSE [Concomitant]
     Route: 065
  6. NAABAK [Concomitant]
     Route: 065
  7. PREVISCAN [Concomitant]
     Route: 065

REACTIONS (1)
  - Hyponatraemia [Recovering/Resolving]
